FAERS Safety Report 8547624-8 (Version None)
Quarter: 2012Q3

REPORT INFORMATION
  Report Type: 
  Country: None (occurrence: None)
  Receive Date: 20120727
  Receipt Date: 20120410
  Transmission Date: 20120928
  Serious: Yes (Other)
  Sender: FDA-Public Use
  Company Number: US-ASTRAZENECA-2012SE23664

PATIENT
  Sex: Female

DRUGS (1)
  1. SEROQUEL XR [Suspect]
     Route: 048

REACTIONS (5)
  - SUICIDAL IDEATION [None]
  - STRESS [None]
  - INTENTIONAL DRUG MISUSE [None]
  - INSOMNIA [None]
  - MENTAL DISORDER [None]
